FAERS Safety Report 23522651 (Version 1)
Quarter: 2024Q1

REPORT INFORMATION
  Report Type: Spontaneous
  Country: US (occurrence: US)
  Receive Date: 20240214
  Receipt Date: 20240214
  Transmission Date: 20240409
  Serious: No
  Sender: FDA-Public Use
  Company Number: US-IGSA-BIG0023521

PATIENT
  Sex: Female

DRUGS (3)
  1. THROMBATE III [Suspect]
     Active Substance: ANTITHROMBIN III HUMAN
     Indication: Antithrombin III deficiency
     Dosage: 4848 INTERNATIONAL UNIT, T.I.WK.
  2. THROMBATE III [Suspect]
     Active Substance: ANTITHROMBIN III HUMAN
     Dosage: 610 INTERNATIONAL UNIT, T.I.WK.
  3. ENOXAPARIN [Concomitant]
     Active Substance: ENOXAPARIN

REACTIONS (1)
  - Drug ineffective [Recovered/Resolved]
